FAERS Safety Report 8552854-5 (Version None)
Quarter: 2012Q3

REPORT INFORMATION
  Report Type: 
  Country: None (occurrence: None)
  Receive Date: 20120731
  Receipt Date: 20120726
  Transmission Date: 20120928
  Serious: Yes (Hospitalization, Other)
  Sender: FDA-Public Use
  Company Number: PHHY2009CA57779

PATIENT
  Sex: Female

DRUGS (15)
  1. VIOKASE 16 [Concomitant]
     Dosage: 1 DF, TID
     Dates: start: 20110714
  2. SANDOSTATIN LAR [Suspect]
     Indication: CARCINOID TUMOUR OF THE GASTROINTESTINAL TRACT
     Dosage: 20 MG, QMO
     Route: 030
     Dates: start: 20070423, end: 20101206
  3. SANDOSTATIN LAR [Suspect]
     Dosage: 30 MG, QW2
     Route: 030
  4. SANDOSTATIN LAR [Suspect]
     Dosage: 40 MG, EVERY 3 WEEKS
     Route: 030
     Dates: start: 20100726, end: 20100803
  5. RAMIPRIL [Concomitant]
  6. SANDOSTATIN LAR [Suspect]
     Dosage: 30 MG, ONCE A MONTH
     Route: 030
  7. SANDOSTATIN LAR [Suspect]
     Dosage: 40 MG, EVERY 2 WEEKS
     Route: 030
     Dates: start: 20070503
  8. SYNTHROID [Concomitant]
     Dates: start: 20110611
  9. SANDOSTATIN LAR [Suspect]
     Indication: CARCINOID TUMOUR
     Dosage: 30 MG, QW3
     Route: 030
     Dates: start: 20070503
  10. SANDOSTATIN LAR [Suspect]
     Dosage: 30 MG, QW2
     Route: 030
  11. SANDOSTATIN LAR [Suspect]
     Dosage: 40 MG, EVERY 3 WEEKS
     Route: 030
  12. SANDOSTATIN LAR [Suspect]
     Dosage: 40 MG, QW3
     Route: 030
  13. SANDOSTATIN LAR [Suspect]
     Dosage: 60 MG, BIW
     Route: 030
  14. SANDOSTATIN LAR [Suspect]
     Dosage: 30 MG, BIW
     Route: 030
  15. SANDOSTATIN LAR [Suspect]
     Dosage: 40 MG, BIW
     Route: 030

REACTIONS (42)
  - FOOT FRACTURE [None]
  - ADRENAL MASS [None]
  - BACK PAIN [None]
  - FAECES DISCOLOURED [None]
  - HYPOKINESIA [None]
  - ABDOMINAL DISTENSION [None]
  - GASTROINTESTINAL INFECTION [None]
  - WEIGHT DECREASED [None]
  - ADRENAL ADENOMA [None]
  - GASTRIC CANCER RECURRENT [None]
  - FLATULENCE [None]
  - MYALGIA [None]
  - NASAL CONGESTION [None]
  - GASTROINTESTINAL OBSTRUCTION [None]
  - BREAST MASS [None]
  - RENAL CYST [None]
  - MALIGNANT ASCITES [None]
  - RHINORRHOEA [None]
  - ABNORMAL FAECES [None]
  - MUSCLE SPASMS [None]
  - HEART RATE INCREASED [None]
  - ABDOMINAL DISCOMFORT [None]
  - HYPERTENSION [None]
  - DIARRHOEA [None]
  - ARTERIAL OCCLUSIVE DISEASE [None]
  - NAUSEA [None]
  - MUSCLE MASS [None]
  - PAIN [None]
  - VOMITING [None]
  - ABDOMINAL PAIN [None]
  - BENIGN BREAST NEOPLASM [None]
  - NEPHROLITHIASIS [None]
  - HEPATIC LESION [None]
  - MUCOUS STOOLS [None]
  - SENSATION OF HEAVINESS [None]
  - FLUSHING [None]
  - NASOPHARYNGITIS [None]
  - POST PROCEDURAL COMPLICATION [None]
  - SOFT TISSUE DISORDER [None]
  - PAIN IN EXTREMITY [None]
  - ROAD TRAFFIC ACCIDENT [None]
  - TYPE 2 DIABETES MELLITUS [None]
